FAERS Safety Report 5442302-6 (Version None)
Quarter: 2007Q3

REPORT INFORMATION
  Report Type: 
  Country: None (occurrence: None)
  Receive Date: 20070904
  Receipt Date: 20070823
  Transmission Date: 20080115
  Serious: Yes (Life-Threatening, Hospitalization)
  Sender: FDA-Public Use
  Company Number: DE-PFIZER INC-2007070728

PATIENT
  Age: 62 Year
  Sex: Male

DRUGS (5)
  1. AMLODIPINE [Suspect]
  2. ZOLPIDEM TARTRATE [Suspect]
  3. ETHANOL [Suspect]
  4. MIRTAZAPINE [Suspect]
  5. PARACETAMOL [Suspect]

REACTIONS (2)
  - COMA [None]
  - DRUG TOXICITY [None]
